FAERS Safety Report 9701609 (Version 2)
Quarter: 2013Q4

REPORT INFORMATION
  Report Type: Spontaneous
  Country: US (occurrence: US)
  Receive Date: 20131121
  Receipt Date: 20131203
  Transmission Date: 20140711
  Serious: No
  Sender: FDA-Public Use
  Company Number: US-GILEAD-2013-0088083

PATIENT
  Sex: Female

DRUGS (3)
  1. LETAIRIS [Suspect]
     Indication: PULMONARY HYPERTENSION
     Dosage: 10 MG, QD
     Dates: start: 20120117
  2. LETAIRIS [Suspect]
     Indication: SCLERODERMA
  3. REVATIO [Concomitant]

REACTIONS (3)
  - Eye swelling [Unknown]
  - Abdominal distension [Unknown]
  - Swelling face [Unknown]
